FAERS Safety Report 14334571 (Version 1)
Quarter: 2017Q4

REPORT INFORMATION
  Report Type: Spontaneous
  Country: JP (occurrence: JP)
  Receive Date: 20171228
  Receipt Date: 20171228
  Transmission Date: 20180321
  Serious: Yes (Death, Hospitalization)
  Sender: FDA-Public Use
  Company Number: JP-AMGEN-JPNSP2017143102

PATIENT
  Age: 83 Year
  Sex: Female

DRUGS (1)
  1. PRALIA [Suspect]
     Active Substance: DENOSUMAB
     Indication: OSTEOPOROSIS
     Dosage: 60 MG, QD
     Route: 058

REACTIONS (3)
  - Renal failure [Unknown]
  - Swelling face [Recovering/Resolving]
  - Death [Fatal]

NARRATIVE: CASE EVENT DATE: 201711
